FAERS Safety Report 22379423 (Version 2)
Quarter: 2023Q2

REPORT INFORMATION
  Report Type: Spontaneous
  Country: CA (occurrence: CA)
  Receive Date: 20230529
  Receipt Date: 20230626
  Transmission Date: 20230722
  Serious: Yes (Other)
  Sender: FDA-Public Use
  Company Number: CA-PFIZER INC-202200857355

PATIENT
  Age: 7 Month
  Sex: Female

DRUGS (2)
  1. SOMATROPIN [Suspect]
     Active Substance: SOMATROPIN
     Indication: Prader-Willi syndrome
     Dosage: 150 UG, DAILY, 6X/WEEK
     Route: 058
     Dates: start: 20220720
  2. PREVACID [Concomitant]
     Active Substance: LANSOPRAZOLE
     Dosage: 1 DF

REACTIONS (3)
  - Adenoidectomy [Unknown]
  - Tonsillectomy [Unknown]
  - Injection site haemorrhage [Not Recovered/Not Resolved]

NARRATIVE: CASE EVENT DATE: 20220701
